FAERS Safety Report 13164007 (Version 1)
Quarter: 2017Q1

REPORT INFORMATION
  Report Type: Report from Study
  Country: DK (occurrence: DK)
  Receive Date: 20170130
  Receipt Date: 20170130
  Transmission Date: 20170428
  Serious: Yes (Other)
  Sender: FDA-Public Use
  Company Number: DK-UCBSA-2017003012

PATIENT
  Age: 29 Year
  Sex: Male

DRUGS (2)
  1. CERTOLIZUMAB PEGOL [Suspect]
     Active Substance: CERTOLIZUMAB PEGOL
     Indication: ARTHRITIS REACTIVE
     Dosage: 200 MG, EV 2 WEEKS(QOW)
     Route: 058
     Dates: start: 20140708, end: 20151116
  2. METHOTREXAT SANDOZ [Suspect]
     Active Substance: METHOTREXATE SODIUM
     Indication: ARTHRITIS REACTIVE
     Dosage: STRENGTH: 2.5 MG
     Route: 048
     Dates: start: 20140708

REACTIONS (1)
  - Mental impairment [Not Recovered/Not Resolved]

NARRATIVE: CASE EVENT DATE: 20150127
